FAERS Safety Report 5885977-X (Version None)
Quarter: 2008Q3

REPORT INFORMATION
  Report Type: 
  Country: None (occurrence: None)
  Receive Date: 20080912
  Receipt Date: 20080903
  Transmission Date: 20090109
  Serious: Yes (Other)
  Sender: FDA-Public Use
  Company Number: 20136

PATIENT
  Age: 49 Year
  Sex: Female

DRUGS (4)
  1. CYTARABINE [Suspect]
     Indication: ACUTE MYELOID LEUKAEMIA
  2. FLUDARABINE PHOSPHATE [Suspect]
     Indication: ACUTE MYELOID LEUKAEMIA
  3. NEUPOGEN [Suspect]
     Indication: ACUTE MYELOID LEUKAEMIA
  4. IDARUBICIN HCL [Suspect]
     Indication: ACUTE MYELOID LEUKAEMIA

REACTIONS (18)
  - BLISTER [None]
  - CATHETER RELATED COMPLICATION [None]
  - CATHETER RELATED INFECTION [None]
  - CATHETER SITE INFECTION [None]
  - CATHETER SITE INFLAMMATION [None]
  - CATHETER SITE NECROSIS [None]
  - CONTUSION [None]
  - ILL-DEFINED DISORDER [None]
  - IMMUNOSUPPRESSION [None]
  - IMPAIRED HEALING [None]
  - INFECTION [None]
  - INJURY [None]
  - LUNG INFECTION [None]
  - NEUTROPENIC SEPSIS [None]
  - SKIN INFECTION [None]
  - SKIN NODULE [None]
  - SPLENIC INFECTION [None]
  - TREATMENT FAILURE [None]
